FAERS Safety Report 4444667-0 (Version None)
Quarter: 2004Q3

REPORT INFORMATION
  Report Type: 
  Country: None (occurrence: None)
  Receive Date: 20040907
  Receipt Date: 20040824
  Transmission Date: 20050211
  Serious: Yes (Hospitalization)
  Sender: FDA-Public Use
  Company Number: 2003031653

PATIENT
  Sex: Female
  Weight: 37 kg

DRUGS (5)
  1. VIAGRA [Suspect]
     Indication: PULMONARY HYPERTENSION
     Dosage: 100 MG (2 IN 1 D) ORAL
     Route: 048
  2. PERINDOPRIL (PERINDOPRIL) [Concomitant]
  3. FUROSEMIDE [Concomitant]
  4. METOPROLOL TARTRATE [Concomitant]
  5. WARFARIN (WARFARIN) [Concomitant]

REACTIONS (9)
  - DIFFICULTY IN WALKING [None]
  - FEMORAL ARTERIAL STENOSIS [None]
  - LOCALISED OSTEOARTHRITIS [None]
  - OEDEMA PERIPHERAL [None]
  - PAIN [None]
  - PAIN IN EXTREMITY [None]
  - SKIN ULCER [None]
  - TREATMENT NONCOMPLIANCE [None]
  - VASCULAR CALCIFICATION [None]
